FAERS Safety Report 14961609 (Version 1)
Quarter: 2018Q2

REPORT INFORMATION
  Report Type: Spontaneous
  Country: IN (occurrence: IN)
  Receive Date: 20180601
  Receipt Date: 20180601
  Transmission Date: 20180711
  Serious: Yes (Other)
  Sender: FDA-Public Use
  Company Number: IN-EDENBRIDGE PHARMACEUTICALS, LLC-IN-2018EDE000161

PATIENT
  Sex: Female

DRUGS (1)
  1. PREDNISOLONE SODIUM PHOSPHATE. [Suspect]
     Active Substance: PREDNISOLONE SODIUM PHOSPHATE
     Indication: HERPES GESTATIONIS
     Dosage: 50 MG, QD

REACTIONS (3)
  - Foetal hypokinesia [Unknown]
  - Oligohydramnios [Unknown]
  - Foetal growth restriction [Unknown]
